FAERS Safety Report 8382443-7 (Version None)
Quarter: 2012Q2

REPORT INFORMATION
  Report Type: 
  Country: None (occurrence: None)
  Receive Date: 20120524
  Receipt Date: 20120520
  Transmission Date: 20120825
  Serious: Yes (Other)
  Sender: FDA-Public Use
  Company Number: PHHY2012HU030855

PATIENT
  Age: 52 Year
  Sex: Female

DRUGS (4)
  1. ZOLEDRONOC ACID [Suspect]
     Indication: OSTEOPOROSIS
     Dosage: 5 MG, UNK
     Route: 042
     Dates: start: 20110101
  2. CALCIUM [Concomitant]
     Dosage: UNK UKN, UNK
  3. VITAMIN D [Concomitant]
     Dosage: UNK UKN, UNK
  4. ZOLEDRONOC ACID [Suspect]
     Dosage: 5 MG, UNK
     Route: 042

REACTIONS (7)
  - GINGIVAL SWELLING [None]
  - OSTEONECROSIS OF JAW [None]
  - GINGIVAL INFECTION [None]
  - EXPOSED BONE IN JAW [None]
  - ORAL DISORDER [None]
  - ORAL MUCOSAL ERYTHEMA [None]
  - PAIN IN JAW [None]
